FAERS Safety Report 11794979 (Version 2)
Quarter: 2015Q4

REPORT INFORMATION
  Report Type: Spontaneous
  Country: NL (occurrence: NL)
  Receive Date: 20151202
  Receipt Date: 20151217
  Transmission Date: 20160305
  Serious: No
  Sender: FDA-Public Use
  Company Number: NL-TAKEDA-2015TUS017016

PATIENT
  Sex: Female

DRUGS (3)
  1. METHOTREXATE [Concomitant]
     Active Substance: METHOTREXATE
     Dosage: UNK
     Route: 048
  2. ENTYVIO [Suspect]
     Active Substance: VEDOLIZUMAB
     Indication: CROHN^S DISEASE
     Dosage: 300 MG, UNK
     Route: 042
  3. PREDNISOLON                        /00016202/ [Concomitant]
     Route: 048

REACTIONS (7)
  - Urticaria [Unknown]
  - Headache [Unknown]
  - Fatigue [Unknown]
  - Head discomfort [Unknown]
  - Amenorrhoea [Unknown]
  - Dizziness [Unknown]
  - Muscular weakness [Unknown]
